FAERS Safety Report 6134903-7 (Version None)
Quarter: 2009Q1

REPORT INFORMATION
  Report Type: 
  Country: None (occurrence: None)
  Receive Date: 20090327
  Receipt Date: 20090317
  Transmission Date: 20090719
  Serious: Yes (Other)
  Sender: FDA-Public Use
  Company Number: US-ELI_LILLY_AND_COMPANY-US200902002846

PATIENT
  Age: 45 Year
  Sex: Female
  Weight: 87.982 kg

DRUGS (5)
  1. CYMBALTA [Suspect]
     Dosage: 30 MG, UNK
     Dates: start: 20081215, end: 20081222
  2. CYMBALTA [Suspect]
     Dosage: 60 MG, UNK
     Dates: start: 20081222, end: 20090113
  3. MULTI-VITAMIN [Concomitant]
     Dosage: UNK, DAILY (1/D)
  4. CALCIUM CARBONATE [Concomitant]
     Dosage: UNK, DAILY (1/D)
  5. FISH OIL [Concomitant]
     Dosage: UNK, DAILY (1/D)

REACTIONS (11)
  - ABDOMINAL PAIN [None]
  - ALANINE AMINOTRANSFERASE INCREASED [None]
  - ASPARTATE AMINOTRANSFERASE INCREASED [None]
  - DIARRHOEA [None]
  - FATIGUE [None]
  - GASTROENTERITIS VIRAL [None]
  - NAUSEA [None]
  - OEDEMA [None]
  - RASH [None]
  - URTICARIA [None]
  - VOMITING [None]
